FAERS Safety Report 20878381 (Version 1)
Quarter: 2022Q2

REPORT INFORMATION
  Report Type: Spontaneous
  Country: US (occurrence: US)
  Receive Date: 20220526
  Receipt Date: 20220526
  Transmission Date: 20220721
  Serious: No
  Sender: FDA-Public Use
  Company Number: US-RADIUS HEALTH INC.-2021US001441

PATIENT
  Sex: Female
  Weight: 56.689 kg

DRUGS (2)
  1. TYMLOS [Suspect]
     Active Substance: ABALOPARATIDE
     Indication: Senile osteoporosis
     Dosage: 80 MCG, QD
     Route: 058
     Dates: start: 202002
  2. TYMLOS [Suspect]
     Active Substance: ABALOPARATIDE
     Dosage: 80MCG, NOT DOSING EVERY DAY

REACTIONS (4)
  - Waist circumference increased [Unknown]
  - Injection site bruising [Unknown]
  - Headache [Unknown]
  - Intentional product misuse [Unknown]
